FAERS Safety Report 15552325 (Version 2)
Quarter: 2018Q4

REPORT INFORMATION
  Report Type: Spontaneous
  Country: US (occurrence: US)
  Receive Date: 20181025
  Receipt Date: 20181031
  Transmission Date: 20190205
  Serious: Yes (Other)
  Sender: FDA-Public Use
  Company Number: US-PFIZER INC-2018426186

PATIENT
  Sex: Male

DRUGS (1)
  1. VIRACEPT [Suspect]
     Active Substance: NELFINAVIR MESYLATE
     Dosage: UNK
     Dates: start: 1997

REACTIONS (1)
  - Brain neoplasm malignant [Unknown]

NARRATIVE: CASE EVENT DATE: 2002
